FAERS Safety Report 24253379 (Version 1)
Quarter: 2024Q3

REPORT INFORMATION
  Report Type: Spontaneous
  Country: FR (occurrence: FR)
  Receive Date: 20240827
  Receipt Date: 20240827
  Transmission Date: 20241017
  Serious: Yes (Life-Threatening)
  Sender: RANBAXY
  Company Number: FR-SUN PHARMACEUTICAL INDUSTRIES LTD-2024RR-464250

PATIENT
  Age: 51 Year
  Sex: Male

DRUGS (1)
  1. NOREPINEPHRINE [Suspect]
     Active Substance: NOREPINEPHRINE\NOREPINEPHRINE BITARTRATE
     Indication: Wrong product administered
     Dosage: 4 MILLIGRAM, TOTAL 1
     Route: 040
     Dates: start: 20240525, end: 20240525

REACTIONS (3)
  - Wrong product administered [Recovered/Resolved]
  - Hypertensive crisis [Recovered/Resolved]
  - Troponin increased [Recovering/Resolving]

NARRATIVE: CASE EVENT DATE: 20240525
